FAERS Safety Report 25655050 (Version 1)
Quarter: 2025Q3

REPORT INFORMATION
  Report Type: Spontaneous
  Country: IN (occurrence: IN)
  Receive Date: 20250807
  Receipt Date: 20250807
  Transmission Date: 20251021
  Serious: Yes (Disabling, Other)
  Sender: PFIZER
  Company Number: IN-PFIZER INC-PV202300129462

PATIENT
  Age: 63 Year
  Sex: Female
  Weight: 62 kg

DRUGS (10)
  1. LORLATINIB [Suspect]
     Active Substance: LORLATINIB
     Indication: Lung adenocarcinoma
     Route: 048
  2. LORLATINIB [Suspect]
     Active Substance: LORLATINIB
     Dates: start: 202209
  3. LORLATINIB [Suspect]
     Active Substance: LORLATINIB
     Dates: start: 202309
  4. LORLATINIB [Suspect]
     Active Substance: LORLATINIB
     Dosage: 100 MG, 1X/DAY
     Route: 048
  5. LORLATINIB [Suspect]
     Active Substance: LORLATINIB
     Dosage: 75 MG, 1X/DAY
     Route: 048
  6. LORLATINIB [Suspect]
     Active Substance: LORLATINIB
     Dosage: 100 MG, 1X/DAY
     Dates: start: 20220901, end: 202312
  7. LORLATINIB [Suspect]
     Active Substance: LORLATINIB
     Dosage: 75 MG, 1X/DAY
     Route: 048
     Dates: start: 202312, end: 202411
  8. LORLATINIB [Suspect]
     Active Substance: LORLATINIB
     Dosage: 100 MG, 1X/DAY
     Route: 048
     Dates: start: 20250611
  9. ZOLEDRONIC ACID [Concomitant]
     Active Substance: ZOLEDRONIC ACID
     Dosage: 4 MG IN NS IV ONCE 30 MIN, ONCE IN 3 MONTHS
     Route: 042
  10. SODIUM CHLORIDE [Concomitant]
     Active Substance: SODIUM CHLORIDE
     Route: 042

REACTIONS (7)
  - Peripheral swelling [Unknown]
  - Osteonecrosis [Unknown]
  - Metastases to breast [Unknown]
  - Swelling [Unknown]
  - Hyperglycaemia [Unknown]
  - Arthritis [Unknown]
  - Hypertriglyceridaemia [Unknown]
